FAERS Safety Report 26042033 (Version 3)
Quarter: 2025Q4

REPORT INFORMATION
  Report Type: Spontaneous
  Country: US (occurrence: US)
  Receive Date: 20251113
  Receipt Date: 20251222
  Transmission Date: 20260118
  Serious: Yes (Hospitalization)
  Sender: OTSUKA
  Company Number: US-OTSUKA-2025_027466

PATIENT
  Age: 65 Year
  Sex: Male

DRUGS (41)
  1. ARIPIPRAZOLE [Suspect]
     Active Substance: ARIPIPRAZOLE
     Indication: Schizophrenia
     Dosage: 10 MG, DAILY (DAY 18 TO 23 AFTER 1ST ADMISSION)
     Route: 061
  2. ARIPIPRAZOLE [Suspect]
     Active Substance: ARIPIPRAZOLE
     Dosage: 7.5 NG, DAILY (DAY 14 TO 16 AFTER 1ST ADMISIION)
     Route: 061
  3. ARIPIPRAZOLE [Suspect]
     Active Substance: ARIPIPRAZOLE
     Dosage: 15 MG, DAILY (DAY 24 TO 28 AFTER 1ST ADMISSION)
     Route: 061
  4. ARIPIPRAZOLE [Suspect]
     Active Substance: ARIPIPRAZOLE
     Dosage: 7.5 MG, DAILY (DAY 3 AND DAY 6 TO 12 AFTER 2ND ADMISSION)
     Route: 061
  5. RISPERIDONE [Concomitant]
     Active Substance: RISPERIDONE
     Indication: Psychotic disorder
     Dosage: 3 MG, DAILY (DAY 2 TO DAY 8 AFTER 1ST ADMISSION)
     Route: 065
  6. RISPERIDONE [Concomitant]
     Active Substance: RISPERIDONE
     Dosage: 4 MG, DAILY (DAY 9 AFTER 1ST ADMISSION)
     Route: 065
  7. RISPERIDONE [Concomitant]
     Active Substance: RISPERIDONE
     Dosage: 3 MG, DAILY (DAY 10 TO 13 AFTER 1ST ADMISSION)
     Route: 065
  8. RISPERIDONE [Concomitant]
     Active Substance: RISPERIDONE
     Dosage: 2 MG, DAILY (DAY 14 AFTER 1ST ADMISSION)
     Route: 065
  9. RISPERIDONE [Concomitant]
     Active Substance: RISPERIDONE
     Dosage: 3 MG, DAILY (DAY 15 AFTER 1ST ADMISSION)
     Route: 065
  10. RISPERIDONE [Concomitant]
     Active Substance: RISPERIDONE
     Dosage: 4 MG, DAILY (DAY 16 AFTER 1ST ADMISSION)
     Route: 065
  11. RISPERIDONE [Concomitant]
     Active Substance: RISPERIDONE
     Dosage: 4 MG, DAILY (DAY 29 TO 36 AFTER 1ST ADMISSION)
     Route: 065
  12. RISPERIDONE [Concomitant]
     Active Substance: RISPERIDONE
     Dosage: 1 MG, DAILY (DAY 37 TO 38 AFTER 1ST ADMISSION)
     Route: 065
  13. RISPERIDONE [Concomitant]
     Active Substance: RISPERIDONE
     Dosage: 1 MG, DAILY (DAY 12 AFTER 2ND ADMISSION)
     Route: 065
  14. RISPERIDONE [Concomitant]
     Active Substance: RISPERIDONE
     Dosage: 3 MG, DAILY (DAY 13 TO 16 AFTER 2ND ADMISSION)
     Route: 065
  15. RISPERIDONE [Concomitant]
     Active Substance: RISPERIDONE
     Dosage: 4 MG, DAILY (DAY 17 TO DAY24 AFTER 2ND ADMISSION)
     Route: 065
  16. LOXAPINE [Concomitant]
     Active Substance: LOXAPINE
     Indication: Product used for unknown indication
     Dosage: 10 MG, DAILY (DAY 37 AFTER 1ST ADMISSION)
     Route: 065
  17. LOXAPINE [Concomitant]
     Active Substance: LOXAPINE
     Dosage: 20 MG, DAILY (DAY 38 AFTER 1ST ADMISSION)
     Route: 065
  18. LOXAPINE [Concomitant]
     Active Substance: LOXAPINE
     Dosage: 30 MG, DAILY (DAY 39 TO 51 AFTER 1ST ADMISSION)
     Route: 065
  19. LOXAPINE [Concomitant]
     Active Substance: LOXAPINE
     Dosage: 40 MG, DAILY (DAY 52 TO 57 AFTER 1ST ADMISSION)
     Route: 065
  20. LOXAPINE [Concomitant]
     Active Substance: LOXAPINE
     Dosage: 50 MG, DAILY (DAY 58 TO 59 AFTER 1ST ADMISSION)
     Route: 065
  21. LOXAPINE [Concomitant]
     Active Substance: LOXAPINE
     Dosage: 40 MG, BID (DISCHARGED ON DAY 67)
     Route: 065
  22. TRAZODONE [Concomitant]
     Active Substance: TRAZODONE HYDROCHLORIDE
     Indication: Product used for unknown indication
     Dosage: 50 MG, DAILY (DAY 22 AFTER 1ST ADMISSION)
     Route: 065
  23. TRAZODONE [Concomitant]
     Active Substance: TRAZODONE HYDROCHLORIDE
     Dosage: 75 MG, DAILY (DAY 23 AFTER )
     Route: 065
  24. TRAZODONE [Concomitant]
     Active Substance: TRAZODONE HYDROCHLORIDE
     Dosage: 100 MG, DAILY (DAY 24 TO 26 AFTER 1ST ADMISSION)
     Route: 065
  25. TRAZODONE [Concomitant]
     Active Substance: TRAZODONE HYDROCHLORIDE
     Dosage: 25 MG, DAILY (DAY 11 TO 17 AFTER 2ND ADMISSION)
     Route: 065
  26. TRAZODONE [Concomitant]
     Active Substance: TRAZODONE HYDROCHLORIDE
     Dosage: 50 MG, DAILY (DAY 18 TO 24 AFTER 2ND ADMISSION)
     Route: 065
  27. BUMETANIDE [Concomitant]
     Active Substance: BUMETANIDE
     Indication: Product used for unknown indication
     Dosage: 2 MG, DAILY (DAY 21 TO 22 AFTER 1ST ADMISSION)
     Route: 065
  28. BUMETANIDE [Concomitant]
     Active Substance: BUMETANIDE
     Dosage: 5 MG, DAILY (DAY 23 TO 24 AFTER 1ST ADMISSION)
     Route: 065
  29. BUMETANIDE [Concomitant]
     Active Substance: BUMETANIDE
     Dosage: 4 MG, DAILY (DAY 25 TO 27 AFTER 1ST ADMISSION)
     Route: 065
  30. BUMETANIDE [Concomitant]
     Active Substance: BUMETANIDE
     Dosage: 5 MG, DAILY (DAY 28 AFTER 1ST ADMISSION)
     Route: 065
  31. BUMETANIDE [Concomitant]
     Active Substance: BUMETANIDE
     Dosage: 6 MG, DAILY (DAY 29 TO 41 AFTER 1ST ADMISSION)
     Route: 065
  32. BUMETANIDE [Concomitant]
     Active Substance: BUMETANIDE
     Dosage: 3 MG, DAILY (DAY 46 TO 48 AFTER 1ST ADMISSION)
     Route: 065
  33. SPIRONOLACTONE [Concomitant]
     Active Substance: SPIRONOLACTONE
     Indication: Cardiac failure
     Dosage: 12.5 MG, DAILY (DAY 9 TO 59 AFTER 1ST ADMISSION )
     Route: 065
  34. FUROSEMIDE [Concomitant]
     Active Substance: FUROSEMIDE
     Indication: Product used for unknown indication
     Dosage: 40 MG, DAILY (DAY 2 TO 21 AFTER 1ST ADMISSION)
     Route: 065
  35. FUROSEMIDE [Concomitant]
     Active Substance: FUROSEMIDE
     Dosage: 3 MG, DAILY (DAY 2 TO 3 AFTER 2ND ADMISSION
     Route: 065
  36. FUROSEMIDE [Concomitant]
     Active Substance: FUROSEMIDE
     Dosage: 1 MG, DAILY (DAY 5 TO 10 AFTER 2ND ADMISSION)
     Route: 065
  37. FUROSEMIDE [Concomitant]
     Active Substance: FUROSEMIDE
     Dosage: 2 MG, DAILY (DAY 12 AFTER 2ND ADMISSION)
     Route: 065
  38. FUROSEMIDE [Concomitant]
     Active Substance: FUROSEMIDE
     Dosage: 1 MG, DAILY (DAY 13 TO 16 AFTER 2ND ADMISSION)
     Route: 065
  39. FUROSEMIDE [Concomitant]
     Active Substance: FUROSEMIDE
     Dosage: 2 MG, DAILY (DAY 17 TO 19 AFTER 2ND ADMISSION)
     Route: 065
  40. FUROSEMIDE [Concomitant]
     Active Substance: FUROSEMIDE
     Dosage: 3 MG, DAILY (DAY 20 TO 23 AFTER 2ND ADMISSION)
     Route: 065
  41. FUROSEMIDE [Concomitant]
     Active Substance: FUROSEMIDE
     Dosage: 4 MG, DAILY (DAY 24 AFTER 2ND ADMISSION)
     Route: 065

REACTIONS (1)
  - Inappropriate antidiuretic hormone secretion [Recovered/Resolved]
